FAERS Safety Report 8262423-2 (Version None)
Quarter: 2012Q2

REPORT INFORMATION
  Report Type: 
  Country: None (occurrence: None)
  Receive Date: 20120405
  Receipt Date: 20120323
  Transmission Date: 20120825
  Serious: Yes (Other)
  Sender: FDA-Public Use
  Company Number: ZA-MYLANLABS-2012S1006634

PATIENT
  Age: 30 Year
  Sex: Female

DRUGS (4)
  1. NEORAL [Suspect]
     Indication: IMMUNOSUPPRESSION
     Dosage: TARGET TROUGH CONCENTRATION 50-150 MICROG/L
     Route: 065
  2. LEVONORGESTREL [Suspect]
     Indication: CONTRACEPTION
     Route: 048
  3. AZATHIOPRINE [Suspect]
     Indication: IMMUNOSUPPRESSION
     Route: 065
  4. PREDNISONE TAB [Suspect]
     Indication: IMMUNOSUPPRESSION
     Route: 065

REACTIONS (3)
  - MATERNAL EXPOSURE DURING PREGNANCY [None]
  - NORMAL NEWBORN [None]
  - HAEMORRHAGE IN PREGNANCY [None]
